FAERS Safety Report 24596616 (Version 1)
Quarter: 2024Q4

REPORT INFORMATION
  Report Type: Spontaneous
  Country: US (occurrence: US)
  Receive Date: 20241110
  Receipt Date: 20241110
  Transmission Date: 20250114
  Serious: No
  Sender: SANOFI AVENTIS
  Company Number: US-SA-2024SA305032

PATIENT
  Sex: Male

DRUGS (1)
  1. DUPIXENT [Suspect]
     Active Substance: DUPILUMAB
     Indication: Chronic rhinosinusitis with nasal polyps
     Dosage: 300 MG, QOW
     Route: 058
     Dates: start: 202109, end: 202408

REACTIONS (8)
  - Skin burning sensation [Unknown]
  - Peripheral swelling [Unknown]
  - Pruritus [Unknown]
  - Chronic rhinosinusitis with nasal polyps [Unknown]
  - Condition aggravated [Unknown]
  - Skin exfoliation [Unknown]
  - Rash [Unknown]
  - Skin swelling [Unknown]

NARRATIVE: CASE EVENT DATE: 20240101
